FAERS Safety Report 14995910 (Version 9)
Quarter: 2019Q1

REPORT INFORMATION
  Report Type: Report from Study
  Country: US (occurrence: US)
  Receive Date: 20180611
  Receipt Date: 20190325
  Transmission Date: 20190417
  Serious: Yes (Other)
  Sender: FDA-Public Use
  Company Number: US-PFIZER INC-2018231986

PATIENT
  Age: 86 Year
  Sex: Female

DRUGS (9)
  1. LETROZOLE. [Concomitant]
     Active Substance: LETROZOLE
     Indication: BREAST CANCER FEMALE
     Dosage: 2.5 MG, DAILY
     Dates: start: 20081008
  2. LETROZOLE. [Concomitant]
     Active Substance: LETROZOLE
     Dosage: 2.5 MG, DAILY
     Dates: start: 20180418
  3. AMLODIPINE [Concomitant]
     Active Substance: AMLODIPINE BESYLATE
     Indication: HYPERTENSION
     Dosage: 2.5 MG, DAILY
     Dates: start: 20080808
  4. AMLODIPINE [Concomitant]
     Active Substance: AMLODIPINE BESYLATE
     Dosage: 2.5 MG, DAILY
     Dates: start: 20170130
  5. FLUTICASONE. [Concomitant]
     Active Substance: FLUTICASONE
     Dosage: UNK (2 SPRAY EACH NOSTRIL)
     Dates: start: 20170419
  6. LOSARTAN. [Concomitant]
     Active Substance: LOSARTAN
     Indication: HYPERTENSION
     Dosage: 50 MG, DAILY
     Dates: start: 20151204
  7. ALBUTEROL. [Concomitant]
     Active Substance: ALBUTEROL
     Dosage: UNK, AS NEEDED (1-2 PUFFS AS DIRECTED)
     Dates: start: 20161227
  8. IBRANCE [Suspect]
     Active Substance: PALBOCICLIB
     Dosage: 100 MG, CYCLIC (DAILY 21 DAYS ON 7 DAYS OFF)
     Route: 048
     Dates: start: 20180516, end: 20180612
  9. IBRANCE [Suspect]
     Active Substance: PALBOCICLIB
     Indication: BREAST CANCER FEMALE
     Dosage: 125 MG, DAILY
     Route: 048
     Dates: start: 20180418, end: 2018

REACTIONS (11)
  - Red blood cell count decreased [Not Recovered/Not Resolved]
  - White blood cell count decreased [Not Recovered/Not Resolved]
  - Stomatitis [Recovering/Resolving]
  - Cough [Unknown]
  - Fatigue [Not Recovered/Not Resolved]
  - Blood sodium decreased [Not Recovered/Not Resolved]
  - Renal impairment [Recovered/Resolved]
  - Condition aggravated [Recovered/Resolved]
  - Nasal congestion [Unknown]
  - Diarrhoea [Not Recovered/Not Resolved]
  - Glossodynia [Recovered/Resolved]

NARRATIVE: CASE EVENT DATE: 2018
